FAERS Safety Report 12957614 (Version 1)
Quarter: 2016Q4

REPORT INFORMATION
  Report Type: Spontaneous
  Country: MX (occurrence: MX)
  Receive Date: 20161118
  Receipt Date: 20161118
  Transmission Date: 20170207
  Serious: Yes (Hospitalization, Other)
  Sender: FDA-Public Use
  Company Number: MX-SA-2016SA210159

PATIENT
  Age: 67 Year
  Sex: Male
  Weight: 67 kg

DRUGS (2)
  1. BOCEPREVIR [Concomitant]
     Active Substance: BOCEPREVIR
     Route: 048
     Dates: start: 2012
  2. AMARYL [Suspect]
     Active Substance: GLIMEPIRIDE
     Indication: DIABETES MELLITUS
     Route: 048
     Dates: start: 2006, end: 20161012

REACTIONS (4)
  - Myocardial infarction [Recovered/Resolved]
  - Depression [Not Recovered/Not Resolved]
  - Hyperglycaemia [Recovered/Resolved]
  - Hepatitis C [Not Recovered/Not Resolved]

NARRATIVE: CASE EVENT DATE: 2006
